FAERS Safety Report 4788449-9 (Version None)
Quarter: 2005Q4

REPORT INFORMATION
  Report Type: 
  Country: None (occurrence: None)
  Receive Date: 20051005
  Receipt Date: 20050914
  Transmission Date: 20060501
  Serious: Yes (Other)
  Sender: FDA-Public Use
  Company Number: PHNU2005DE03249

PATIENT

DRUGS (1)
  1. DICLOFENAC [Suspect]
     Route: 030

REACTIONS (1)
  - SKIN HAEMORRHAGE [None]
